FAERS Safety Report 20008087 (Version 2)
Quarter: 2022Q1

REPORT INFORMATION
  Report Type: Report from Study
  Country: US (occurrence: None)
  Receive Date: 20211029
  Receipt Date: 20220125
  Transmission Date: 20220423
  Serious: Yes (Hospitalization)
  Sender: FDA-Public Use
  Company Number: US-ROCHE-2941518

PATIENT
  Age: 65 Year
  Sex: Female
  Weight: 86.4 kg

DRUGS (3)
  1. ATEZOLIZUMAB [Suspect]
     Active Substance: ATEZOLIZUMAB
     Indication: Small cell lung cancer
     Dosage: ON 24/MAY/2021, SHE RECEIVED MOST RECENT DOSE OF ATEZOLIZUMAB PRIOR TO ONSET OF SAE.
     Route: 041
     Dates: start: 20210503
  2. CARBOPLATIN [Suspect]
     Active Substance: CARBOPLATIN
     Indication: Small cell lung cancer
     Dosage: ON 24/MAY/2021, SHE RECEIVED MOST RECENT DOSE OF CARBOPLATIN PRIOR TO ONSET OF SAE.
     Route: 042
     Dates: start: 20210503
  3. ETOPOSIDE [Suspect]
     Active Substance: ETOPOSIDE
     Indication: Small cell lung cancer
     Dosage: ON 26/MAY/2021, SHE RECEIVED MOST RECENT DOSE OF ETOPOSIDE PRIOR TO ONSET OF SAE. ?EXPOSURE START DA
     Route: 042
     Dates: start: 20210503

REACTIONS (2)
  - Oesophagitis [Recovering/Resolving]
  - Muscular weakness [Recovering/Resolving]

NARRATIVE: CASE EVENT DATE: 20210529
